FAERS Safety Report 9571263 (Version 2)
Quarter: 2013Q4

REPORT INFORMATION
  Report Type: Not Available
  Country: FR (occurrence: FR)
  Receive Date: 20131001
  Receipt Date: 20131001
  Transmission Date: 20140711
  Serious: Yes (Other)
  Sender: FDA-Public Use
  Company Number: FR-ASTELLAS-2013EU008042

PATIENT
  Sex: Female

DRUGS (6)
  1. PROGRAF [Suspect]
     Indication: RENAL TRANSPLANT
     Dosage: 5 MG, UNKNOWN/D
     Route: 048
     Dates: start: 2007
  2. MYFORTIC [Suspect]
     Dosage: 360 MG, TID
     Route: 048
     Dates: start: 2007
  3. OGASTORO [Concomitant]
     Dosage: 15 MG, UNKNOWN/D
     Route: 065
     Dates: start: 2010
  4. CORTICOSTEROID NOS [Concomitant]
     Dosage: UNK
     Route: 065
  5. CANDESARTAN [Concomitant]
     Dosage: 8 MG, UNKNOWN/D
     Route: 065
     Dates: start: 2010
  6. ZINNAT                             /00454602/ [Concomitant]
     Dosage: UNK
     Route: 065
     Dates: start: 2010

REACTIONS (3)
  - Depression [Not Recovered/Not Resolved]
  - Irritability [Not Recovered/Not Resolved]
  - Affective disorder [Not Recovered/Not Resolved]
